FAERS Safety Report 10195770 (Version 1)
Quarter: 2014Q2

REPORT INFORMATION
  Report Type: Spontaneous
  Country: GB (occurrence: GB)
  Receive Date: 20140527
  Receipt Date: 20140527
  Transmission Date: 20141212
  Serious: Yes (Other)
  Sender: FDA-Public Use
  Company Number: GB-UCBSA-121897

PATIENT
  Age: 77 Year
  Sex: Male

DRUGS (2)
  1. VIMPAT [Suspect]
     Indication: EPILEPSY
     Dosage: PATIENT CHOICE
     Route: 048
     Dates: start: 201308, end: 20140123
  2. KEPPRA [Concomitant]
     Dosage: DAILY DOSE 500  MG

REACTIONS (4)
  - Bundle branch block right [Recovered/Resolved]
  - Post-traumatic epilepsy [Recovered/Resolved]
  - Circulatory collapse [Unknown]
  - Convulsion [Unknown]
